FAERS Safety Report 11157977 (Version 3)
Quarter: 2016Q4

REPORT INFORMATION
  Report Type: Spontaneous
  Country: PT (occurrence: PT)
  Receive Date: 20150603
  Receipt Date: 20161110
  Transmission Date: 20170206
  Serious: Yes (Disabling)
  Sender: FDA-Public Use
  Company Number: PT-JNJFOC-20150517811

PATIENT
  Sex: Female
  Weight: 55 kg

DRUGS (4)
  1. RISPERDAL CONSTA [Suspect]
     Active Substance: RISPERIDONE
     Indication: SCHIZOPHRENIA
     Route: 030
     Dates: start: 2012
  2. MORFEX [Concomitant]
     Active Substance: FLURAZEPAM HYDROCHLORIDE
     Indication: DEPRESSION
     Route: 048
  3. TRAZODONE [Concomitant]
     Active Substance: TRAZODONE HYDROCHLORIDE
     Indication: DEPRESSION
     Route: 048
  4. TRANXENE T-TAB [Concomitant]
     Active Substance: CLORAZEPATE DIPOTASSIUM
     Indication: DEPRESSION
     Route: 048

REACTIONS (9)
  - Fatigue [Not Recovered/Not Resolved]
  - Myalgia [Not Recovered/Not Resolved]
  - Anxiety [Not Recovered/Not Resolved]
  - Enuresis [Not Recovered/Not Resolved]
  - Insomnia [Not Recovered/Not Resolved]
  - Oropharyngeal pain [Not Recovered/Not Resolved]
  - Hyperhidrosis [Not Recovered/Not Resolved]
  - Increased appetite [Not Recovered/Not Resolved]
  - Weight increased [Not Recovered/Not Resolved]

NARRATIVE: CASE EVENT DATE: 2014
